FAERS Safety Report 9336644 (Version 1)
Quarter: 2013Q2

REPORT INFORMATION
  Report Type: Spontaneous
  Country: FR (occurrence: FR)
  Receive Date: 20130607
  Receipt Date: 20130607
  Transmission Date: 20140414
  Serious: Yes (Hospitalization)
  Sender: FDA-Public Use
  Company Number: PHHY2013FR057657

PATIENT
  Age: 69 Year
  Sex: Male

DRUGS (15)
  1. NEORAL [Suspect]
     Dosage: 75 MG, BID
     Route: 048
     Dates: start: 201202
  2. COLCHIMAX (COLCHICINE\DICYCLOMINE HYDROCHLORIDE) [Interacting]
     Dosage: 1 DF, QD
     Route: 048
     Dates: start: 20130515, end: 20130519
  3. LASILIX [Concomitant]
     Dosage: 80 MG, QD
     Route: 048
     Dates: end: 20130519
  4. RAMIPRIL [Concomitant]
     Dosage: 10 MG, QD
     Route: 048
     Dates: end: 20130519
  5. BISOPROLOL [Concomitant]
     Dosage: 10 MG, QD
     Route: 048
  6. PRAVASTATINE [Concomitant]
     Dosage: 40 MG, UNK
     Route: 048
  7. ALDACTONE [Concomitant]
     Dosage: 12.5 MG, QD
     Route: 048
  8. KARDEGIC [Concomitant]
     Dosage: 1 DF, UNK
     Route: 048
  9. PERMIXON [Concomitant]
     Dosage: 1 DF, UNK
     Route: 048
  10. SEROPLEX [Concomitant]
     Dosage: 1 DF, UNK
     Route: 048
  11. UVEDOSE [Concomitant]
     Route: 048
  12. TOPALGIC LP [Concomitant]
     Dosage: 2 DF, UNK
     Route: 048
  13. DOLIPRANE [Concomitant]
     Dosage: 3 DF, UNK
     Route: 048
  14. INEXIUM//ESOMEPRAZOLE SODIUM [Concomitant]
     Dosage: 1 DF, UNK
     Route: 048
  15. ALLOPURINOL [Concomitant]
     Dosage: 200 MG, UNK
     Route: 048

REACTIONS (4)
  - Renal failure acute [Recovered/Resolved]
  - Diarrhoea [Recovered/Resolved]
  - Dehydration [Recovered/Resolved]
  - Drug interaction [Unknown]
